FAERS Safety Report 18652157 (Version 1)
Quarter: 2020Q4

REPORT INFORMATION
  Report Type: Spontaneous
  Country: FR (occurrence: FR)
  Receive Date: 20201222
  Receipt Date: 20201222
  Transmission Date: 20210114
  Serious: Yes (Other)
  Sender: FDA-Public Use
  Company Number: FR-B.I. PHARMACEUTICALS,INC./RIDGEFIELD-2020-BI-068457

PATIENT
  Age: 42 Year
  Sex: Female

DRUGS (7)
  1. TRACRIUM [Suspect]
     Active Substance: ATRACURIUM BESYLATE
     Indication: ANAESTHESIA
     Route: 042
     Dates: start: 20160502, end: 20160502
  2. PROPOFOL. [Suspect]
     Active Substance: PROPOFOL
     Indication: ANAESTHESIA
     Route: 042
     Dates: start: 20160502, end: 20160502
  3. CEFAZOLINE [CEFAZOLIN] [Suspect]
     Active Substance: CEFAZOLIN
     Indication: ANTIBIOTIC PROPHYLAXIS
     Route: 042
     Dates: start: 20160502, end: 20160502
  4. CHIROCAINE [Suspect]
     Active Substance: LEVOBUPIVACAINE HYDROCHLORIDE
     Indication: ANALGESIC THERAPY
     Route: 053
     Dates: start: 20160502, end: 20160502
  5. DEXAMETHASONE. [Suspect]
     Active Substance: DEXAMETHASONE
     Indication: ANAESTHESIA
     Route: 042
     Dates: start: 20160502, end: 20160502
  6. SUFENTANIL [Suspect]
     Active Substance: SUFENTANIL
     Indication: ANALGESIC THERAPY
     Route: 042
     Dates: start: 20160502, end: 20160502
  7. CATAPRESSAN [Suspect]
     Active Substance: CLONIDINE
     Indication: ANAESTHESIA
     Route: 053
     Dates: start: 20160502, end: 20160502

REACTIONS (1)
  - Anaphylactic shock [Recovered/Resolved]

NARRATIVE: CASE EVENT DATE: 20160502
